FAERS Safety Report 16024737 (Version 1)
Quarter: 2019Q1

REPORT INFORMATION
  Report Type: Spontaneous
  Country: US (occurrence: US)
  Receive Date: 20190301
  Receipt Date: 20190301
  Transmission Date: 20190418
  Serious: Yes (Hospitalization, Other)
  Sender: FDA-Public Use
  Company Number: US-SHIRE-US201905727

PATIENT
  Age: 26 Year
  Sex: Female

DRUGS (1)
  1. NATPARA (PARATHYROID HORMONE) [Suspect]
     Active Substance: PARATHYROID HORMONE
     Indication: PRODUCT USED FOR UNKNOWN INDICATION
     Dosage: 75 MICROGRAM, 1X/DAY:QD, INJECTION
     Route: 050
     Dates: start: 20180227

REACTIONS (5)
  - Hospitalisation [Recovered/Resolved]
  - Product dose omission [Not Recovered/Not Resolved]
  - Cardiac disorder [Not Recovered/Not Resolved]
  - Anxiety [Not Recovered/Not Resolved]
  - Blood calcium decreased [Recovered/Resolved]

NARRATIVE: CASE EVENT DATE: 20190101
